FAERS Safety Report 21091521 (Version 1)
Quarter: 2022Q3

REPORT INFORMATION
  Report Type: Spontaneous
  Country: US (occurrence: US)
  Receive Date: 20220717
  Receipt Date: 20220717
  Transmission Date: 20221027
  Serious: No
  Sender: FDA-Public Use
  Company Number: US-TEVA-2022-US-2048905

PATIENT

DRUGS (1)
  1. PROGLYCEM [Suspect]
     Active Substance: DIAZOXIDE
     Indication: Product used for unknown indication
     Dosage: FORM STREHTH:50MG/ML
     Route: 065

REACTIONS (1)
  - Adverse drug reaction [Unknown]
